FAERS Safety Report 6923179-6 (Version None)
Quarter: 2010Q3

REPORT INFORMATION
  Report Type: 
  Country: None (occurrence: None)
  Receive Date: 20100813
  Receipt Date: 20100809
  Transmission Date: 20110219
  Serious: Yes (Other)
  Sender: FDA-Public Use
  Company Number: US-TEVA-244213USA

PATIENT
  Age: 67 Year
  Sex: Male

DRUGS (1)
  1. ONDANSETRON,SOLUTION FOR INJECTION,2 MG/ML (2ML) [Suspect]
     Indication: PROPHYLAXIS OF NAUSEA AND VOMITING
     Route: 042

REACTIONS (1)
  - DRUG WITHDRAWAL SYNDROME [None]
